FAERS Safety Report 7460537-8 (Version None)
Quarter: 2011Q2

REPORT INFORMATION
  Report Type: 
  Country: None (occurrence: None)
  Receive Date: 20110505
  Receipt Date: 20110503
  Transmission Date: 20111010
  Serious: Yes (Death, Hospitalization)
  Sender: FDA-Public Use
  Company Number: PHHY2011DK37102

PATIENT
  Sex: Male

DRUGS (7)
  1. METHOTREXATE [Suspect]
     Indication: RHEUMATOID ARTHRITIS
     Dosage: 12.5 MG, QW
     Route: 048
     Dates: start: 20020805, end: 20040614
  2. HUMIRA [Suspect]
     Indication: RHEUMATOID ARTHRITIS
     Dosage: 40 MG, QW2
     Route: 058
     Dates: start: 20040225, end: 20040512
  3. ACETAMINOPHEN [Concomitant]
     Dosage: UNK UKN, UNK
     Dates: start: 20020101
  4. MAGNYL ^SAD^ [Concomitant]
     Dosage: UNK UKN, UNK
  5. FOLINSYRE [Concomitant]
     Dosage: UNK UKN, UNK
  6. HUMIRA [Suspect]
     Dosage: 40 MG, UNK
     Route: 058
     Dates: start: 20040501, end: 20040614
  7. SIMVASTATIN [Concomitant]
     Dosage: UNK UKN, UNK
     Dates: start: 20030101

REACTIONS (16)
  - RESPIRATORY FAILURE [None]
  - MYCOBACTERIAL INFECTION [None]
  - CONSTIPATION [None]
  - CHEST PAIN [None]
  - GENERAL PHYSICAL HEALTH DETERIORATION [None]
  - COAGULOPATHY [None]
  - HAEMODYNAMIC INSTABILITY [None]
  - PAINFUL RESPIRATION [None]
  - SEPSIS [None]
  - RENAL TUBULAR NECROSIS [None]
  - PYREXIA [None]
  - DISSEMINATED TUBERCULOSIS [None]
  - LUNG DISORDER [None]
  - DRUG INTOLERANCE [None]
  - PNEUMONIA [None]
  - MULTI-ORGAN FAILURE [None]
